FAERS Safety Report 24466273 (Version 1)
Quarter: 2024Q4

REPORT INFORMATION
  Report Type: Spontaneous
  Country: US (occurrence: US)
  Receive Date: 20241018
  Receipt Date: 20241018
  Transmission Date: 20250114
  Serious: No
  Sender: JOHNSON AND JOHNSON
  Company Number: US-JNJFOC-20241012017

PATIENT
  Sex: Male

DRUGS (1)
  1. RYBREVANT [Suspect]
     Active Substance: AMIVANTAMAB-VMJW
     Indication: Product used for unknown indication
     Dosage: DAY 1 DOSE
     Route: 065

REACTIONS (5)
  - Chest pain [Unknown]
  - Chest discomfort [Unknown]
  - Tremor [Unknown]
  - Chills [Unknown]
  - Infusion related reaction [Unknown]
